FAERS Safety Report 18055708 (Version 1)
Quarter: 2020Q3

REPORT INFORMATION
  Report Type: Spontaneous
  Country: MX (occurrence: MX)
  Receive Date: 20200722
  Receipt Date: 20200722
  Transmission Date: 20201103
  Serious: Yes (Other)
  Sender: FDA-Public Use
  Company Number: MX-COLLEGIUM PHARMACEUTICAL, INC.-MX-2020COL000516

PATIENT
  Age: 80 Year

DRUGS (1)
  1. TAPENTADOL [Suspect]
     Active Substance: TAPENTADOL
     Indication: POST HERPETIC NEURALGIA
     Dosage: 1 DOSAGE FORM
     Route: 048

REACTIONS (1)
  - Myocardial infarction [Unknown]
